FAERS Safety Report 15663569 (Version 6)
Quarter: 2019Q3

REPORT INFORMATION
  Report Type: Report from Study
  Country: US (occurrence: US)
  Receive Date: 20181128
  Receipt Date: 20190827
  Transmission Date: 20191004
  Serious: Yes (Hospitalization, Other)
  Sender: FDA-Public Use
  Company Number: US-ASTELLAS-2018US050102

PATIENT
  Sex: Male

DRUGS (1)
  1. ENZALUTAMIDE [Suspect]
     Active Substance: ENZALUTAMIDE
     Indication: PROSTATE CANCER
     Route: 048
     Dates: start: 20181023, end: 20190813

REACTIONS (12)
  - Pruritus generalised [Not Recovered/Not Resolved]
  - Product dose omission [Unknown]
  - Urinary bladder haemorrhage [Not Recovered/Not Resolved]
  - Blood test abnormal [Not Recovered/Not Resolved]
  - Haemoglobin decreased [Unknown]
  - Intentional product misuse [Unknown]
  - Red blood cell count increased [Unknown]
  - Thrombophlebitis [Unknown]
  - Haematocrit abnormal [Unknown]
  - Fatigue [Not Recovered/Not Resolved]
  - Prostatic specific antigen increased [Unknown]
  - White blood cell count increased [Unknown]
